FAERS Safety Report 6399596-2 (Version None)
Quarter: 2009Q4

REPORT INFORMATION
  Report Type: 
  Country: None (occurrence: None)
  Receive Date: 20091009
  Receipt Date: 20091009
  Transmission Date: 20100525
  Serious: Yes (Life-Threatening, Hospitalization)
  Sender: FDA-Public Use
  Company Number: None

PATIENT
  Age: 81 Year
  Sex: Female
  Weight: 52.1637 kg

DRUGS (1)
  1. COUMADIN [Suspect]
     Indication: HEART VALVE REPLACEMENT
     Dosage: VARIES DAYLY DAYLY BUCCAL
     Route: 002

REACTIONS (5)
  - DRUG PRESCRIBING ERROR [None]
  - MEDICATION ERROR [None]
  - PROTHROMBIN TIME ABNORMAL [None]
  - SKIN DISCOLOURATION [None]
  - WRONG DRUG ADMINISTERED [None]
